FAERS Safety Report 24695608 (Version 1)
Quarter: 2024Q4

REPORT INFORMATION
  Report Type: Report from Study
  Country: US (occurrence: US)
  Receive Date: 20241204
  Receipt Date: 20241204
  Transmission Date: 20250115
  Serious: Yes (Other)
  Sender: STALLERGENES
  Company Number: US-AIMMUNE THERAPEUTICS, INC.-2024AIMT01199

PATIENT
  Age: 4 Year
  Sex: Female

DRUGS (4)
  1. PALFORZIA [Suspect]
     Active Substance: PEANUT
     Indication: Food allergy
     Dosage: 0.5 - 6.0 MG, ONCE
     Dates: start: 20240708, end: 20240708
  2. PALFORZIA [Suspect]
     Active Substance: PEANUT
     Dosage: 6 MG, ONCE, LAST DOSE PRIOR TO EVENT
     Dates: start: 20240722, end: 20240722
  3. FLONASE ALLERGY RELIEF [Concomitant]
     Active Substance: FLUTICASONE PROPIONATE
     Indication: Product used for unknown indication
     Dosage: 50 MCG SPRAY
  4. FLUTICASON HFA [Concomitant]
     Indication: Product used for unknown indication
     Dosage: 44 MCG AER

REACTIONS (5)
  - Anaphylactic reaction [Recovered/Resolved]
  - Nasal congestion [Recovered/Resolved]
  - Vomiting [Recovered/Resolved]
  - Abdominal pain [Recovered/Resolved]
  - Sneezing [Recovered/Resolved]

NARRATIVE: CASE EVENT DATE: 20240722
